FAERS Safety Report 17389149 (Version 6)
Quarter: 2020Q1

REPORT INFORMATION
  Report Type: Report from Study
  Country: None (occurrence: NL)
  Receive Date: 20200206
  Receipt Date: 20200309
  Transmission Date: 20200409
  Serious: Yes (Other)
  Sender: FDA-Public Use
  Company Number: NL-ABBVIE-19K-114-2938341-00

PATIENT
  Age: 77 Year
  Sex: Male

DRUGS (2)
  1. DUODOPA [Suspect]
     Active Substance: CARBIDOPA\LEVODOPA
     Dosage: MD: 11 CD: 1.9 ED: 1.0
     Route: 050
     Dates: start: 20200203
  2. DUODOPA [Suspect]
     Active Substance: CARBIDOPA\LEVODOPA
     Indication: PARKINSON^S DISEASE
     Dosage: MD 11.0, CD 1.9, ED 1.0
     Route: 050
     Dates: start: 20190916

REACTIONS (21)
  - Dyschezia [Not Recovered/Not Resolved]
  - Dyskinesia [Recovered/Resolved]
  - Dyskinesia [Not Recovered/Not Resolved]
  - Skin cancer [Not Recovered/Not Resolved]
  - Emotional distress [Recovered/Resolved]
  - Intentional medical device removal by patient [Recovered/Resolved]
  - Fibroma [Not Recovered/Not Resolved]
  - Intentional medical device removal by patient [Recovered/Resolved]
  - Muscle rigidity [Not Recovered/Not Resolved]
  - Musculoskeletal stiffness [Not Recovered/Not Resolved]
  - Negativism [Not Recovered/Not Resolved]
  - Head discomfort [Not Recovered/Not Resolved]
  - Confusional state [Not Recovered/Not Resolved]
  - Bradykinesia [Not Recovered/Not Resolved]
  - Delirium [Recovered/Resolved]
  - Hyperkinesia [Recovering/Resolving]
  - Dizziness postural [Not Recovered/Not Resolved]
  - Mental impairment [Not Recovered/Not Resolved]
  - Posture abnormal [Not Recovered/Not Resolved]
  - On and off phenomenon [Not Recovered/Not Resolved]
  - Tension [Not Recovered/Not Resolved]

NARRATIVE: CASE EVENT DATE: 20190916
